FAERS Safety Report 5116027-0 (Version None)
Quarter: 2006Q3

REPORT INFORMATION
  Report Type: 
  Country: None (occurrence: None)
  Receive Date: 20060927
  Receipt Date: 20060227
  Transmission Date: 20061208
  Serious: No
  Sender: FDA-Public Use
  Company Number: US-BRISTOL-MYERS SQUIBB COMPANY-13297775

PATIENT
  Age: 68 Year
  Sex: Male

DRUGS (1)
  1. DEFINITY [Suspect]
     Indication: CARDIOVASCULAR EVALUATION
     Route: 040
     Dates: start: 20060227, end: 20060227

REACTIONS (4)
  - ARTHRALGIA [None]
  - FLANK PAIN [None]
  - GROIN PAIN [None]
  - HEADACHE [None]
